FAERS Safety Report 5945771-8 (Version None)
Quarter: 2008Q4

REPORT INFORMATION
  Report Type: 
  Country: None (occurrence: None)
  Receive Date: 20081106
  Receipt Date: 20081022
  Transmission Date: 20090506
  Serious: Yes (Hospitalization)
  Sender: FDA-Public Use
  Company Number: 238843J08USA

PATIENT
  Age: 44 Year
  Sex: Female
  Weight: 67 kg

DRUGS (7)
  1. REBIF [Suspect]
     Indication: MULTIPLE SCLEROSIS
     Dosage: 44 MCG, 3 IN 1 WEEKS, SUBCUTANEOUS
     Route: 058
     Dates: start: 20080514, end: 20080916
  2. LEVOXYL [Concomitant]
  3. VIVELLE PATCH (ESTRADIOL /00045401/) [Concomitant]
  4. CALCIUM (CALCIUM-SANDOZ /00009901/) [Concomitant]
  5. FOLIC ACID [Concomitant]
  6. XANAX [Concomitant]
  7. NEURONTIN [Concomitant]

REACTIONS (6)
  - BURNING SENSATION [None]
  - FALL [None]
  - HYPOAESTHESIA [None]
  - INJECTION SITE CELLULITIS [None]
  - MEMORY IMPAIRMENT [None]
  - SKIN LACERATION [None]
